FAERS Safety Report 15900775 (Version 1)
Quarter: 2019Q1

REPORT INFORMATION
  Report Type: Report from Study
  Country: US (occurrence: US)
  Receive Date: 20190201
  Receipt Date: 20190201
  Transmission Date: 20190417
  Serious: Yes (Other)
  Sender: FDA-Public Use
  Company Number: US-BAUSCH-BL-2019-003072

PATIENT
  Sex: Female
  Weight: 63.56 kg

DRUGS (2)
  1. XIFAXAN [Suspect]
     Active Substance: RIFAXIMIN
     Dosage: RESTARTED DOSE
     Route: 048
  2. XIFAXAN [Suspect]
     Active Substance: RIFAXIMIN
     Indication: HEPATIC ENCEPHALOPATHY
     Dosage: STARTED ABOUT 13 YEARS AGO, STOPPED ABOUT 2 YEARS AGO FOR ABOUT THREE MONTHS
     Route: 048

REACTIONS (4)
  - Therapy cessation [Unknown]
  - Mental disorder [Not Recovered/Not Resolved]
  - Coma [Recovered/Resolved]
  - Product availability issue [Unknown]
